FAERS Safety Report 13581109 (Version 1)
Quarter: 2017Q2

REPORT INFORMATION
  Report Type: Spontaneous
  Country: US (occurrence: US)
  Receive Date: 20170525
  Receipt Date: 20170525
  Transmission Date: 20170830
  Serious: No
  Sender: FDA-Public Use
  Company Number: US-PFIZER INC-2017227815

PATIENT
  Age: 50 Year
  Sex: Male

DRUGS (5)
  1. KEPPRA [Suspect]
     Active Substance: LEVETIRACETAM
     Dosage: UNK
  2. OXCARBAZEPINE. [Suspect]
     Active Substance: OXCARBAZEPINE
  3. ONFI [Suspect]
     Active Substance: CLOBAZAM
  4. ZONISAMIDE. [Suspect]
     Active Substance: ZONISAMIDE
  5. LYRICA [Suspect]
     Active Substance: PREGABALIN
     Dosage: UNK

REACTIONS (1)
  - Drug ineffective [Unknown]
